FAERS Safety Report 13656149 (Version 1)
Quarter: 2017Q2

REPORT INFORMATION
  Report Type: Spontaneous
  Country: ES (occurrence: ES)
  Receive Date: 20170615
  Receipt Date: 20170615
  Transmission Date: 20170830
  Serious: Yes (Hospitalization, Other)
  Sender: FDA-Public Use
  Company Number: ES-ZYDUS-015461

PATIENT
  Age: 52 Year
  Sex: Male

DRUGS (2)
  1. ALPRAZOLAM. [Suspect]
     Active Substance: ALPRAZOLAM
     Indication: PRODUCT USED FOR UNKNOWN INDICATION
     Route: 065
  2. VENLAFAXINE/VENLAFAXINE HYDROCHLORIDE [Suspect]
     Active Substance: VENLAFAXINE HYDROCHLORIDE
     Indication: PRODUCT USED FOR UNKNOWN INDICATION
     Route: 065

REACTIONS (9)
  - Disturbance in attention [Unknown]
  - Toxicity to various agents [Unknown]
  - Memory impairment [Not Recovered/Not Resolved]
  - Apraxia [Not Recovered/Not Resolved]
  - Depressed level of consciousness [Recovered/Resolved]
  - Hyperreflexia [Unknown]
  - Abnormal behaviour [Unknown]
  - Disorientation [Not Recovered/Not Resolved]
  - Leukoencephalopathy [Unknown]
